FAERS Safety Report 8319082-X (Version None)
Quarter: 2012Q2

REPORT INFORMATION
  Report Type: 
  Country: None (occurrence: None)
  Receive Date: 20120427
  Receipt Date: 20120418
  Transmission Date: 20120825
  Serious: Yes (Other)
  Sender: FDA-Public Use
  Company Number: FR-JNJFOC-20120410200

PATIENT
  Age: 6 Decade
  Sex: Male

DRUGS (3)
  1. BETA BLOCKING AGENT [Concomitant]
     Indication: HYPERTENSION
     Route: 065
  2. RISPERDAL [Suspect]
     Route: 048
  3. RISPERDAL [Suspect]
     Indication: PRODUCT USED FOR UNKNOWN INDICATION
     Dosage: INITIATED AROUND 1 YEAR BEFORE
     Route: 048

REACTIONS (3)
  - BLOOD CORTISOL INCREASED [None]
  - HYPERTENSION [None]
  - WEIGHT INCREASED [None]
